FAERS Safety Report 24658895 (Version 1)
Quarter: 2024Q4

REPORT INFORMATION
  Report Type: Spontaneous
  Country: DE (occurrence: DE)
  Receive Date: 20241125
  Receipt Date: 20241125
  Transmission Date: 20250114
  Serious: Yes (Other)
  Sender: REGENERON
  Company Number: DE-BAYER-2024A166200

PATIENT
  Sex: Male

DRUGS (1)
  1. EYLEA [Suspect]
     Active Substance: AFLIBERCEPT
     Indication: Product used for unknown indication
     Dosage: 40 MG/ML

REACTIONS (3)
  - Myelodysplastic syndrome [Unknown]
  - Anaemia [Unknown]
  - Platelet count decreased [Unknown]
